FAERS Safety Report 4433338-2 (Version None)
Quarter: 2004Q3

REPORT INFORMATION
  Report Type: 
  Country: None (occurrence: None)
  Receive Date: 20040820
  Receipt Date: 20040809
  Transmission Date: 20050211
  Serious: Yes (Hospitalization)
  Sender: FDA-Public Use
  Company Number: WAES 0408USA01001

PATIENT
  Age: 69 Year
  Sex: Female

DRUGS (2)
  1. COZAAR [Suspect]
     Indication: HYPERTENSION
     Dosage: 50 MG/ DAILY PO
     Route: 048
     Dates: start: 20010719
  2. NORVASC [Concomitant]

REACTIONS (2)
  - ARRHYTHMIA [None]
  - SYNCOPE [None]
